FAERS Safety Report 19324755 (Version 1)
Quarter: 2021Q2

REPORT INFORMATION
  Report Type: Report from Study
  Country: None (occurrence: DE)
  Receive Date: 20210528
  Receipt Date: 20210528
  Transmission Date: 20210717
  Serious: Yes (Hospitalization, Other)
  Sender: FDA-Public Use
  Company Number: DE-ABBVIE-21K-062-3868017-00

PATIENT
  Age: 80 Year
  Sex: Male

DRUGS (20)
  1. DUODOPA [Suspect]
     Active Substance: CARBIDOPA\LEVODOPA
     Indication: PARKINSON^S DISEASE
     Dosage: MD 5.8 ML (AT 6 O^CLOCK) CRD 3.8 ML/H (6?22 O^CLOCK) ED 2 ML
     Route: 050
     Dates: start: 20181015
  2. MOVICOL [Concomitant]
     Active Substance: POLYETHYLENE GLYCOL 3350\POTASSIUM CHLORIDE\SODIUM BICARBONATE\SODIUM CHLORIDE
     Indication: PRODUCT USED FOR UNKNOWN INDICATION
  3. BETMIGA [Concomitant]
     Active Substance: MIRABEGRON
     Indication: PRODUCT USED FOR UNKNOWN INDICATION
  4. FINASTERID [Concomitant]
     Active Substance: FINASTERIDE
     Indication: PRODUCT USED FOR UNKNOWN INDICATION
  5. MELATONIN [Concomitant]
     Active Substance: MELATONIN
     Indication: PRODUCT USED FOR UNKNOWN INDICATION
  6. CLOZAPIN [Concomitant]
     Active Substance: CLOZAPINE
     Indication: PSYCHOTIC DISORDER
  7. VITAMIN B12 [Concomitant]
     Active Substance: CYANOCOBALAMIN
     Indication: PRODUCT USED FOR UNKNOWN INDICATION
  8. L?THYROXIN [Concomitant]
     Active Substance: LEVOTHYROXINE SODIUM
     Indication: PRODUCT USED FOR UNKNOWN INDICATION
  9. PAROXETIN [Concomitant]
     Active Substance: PAROXETINE HYDROCHLORIDE
     Indication: PRODUCT USED FOR UNKNOWN INDICATION
  10. DUTASTERIDA [Concomitant]
     Active Substance: DUTASTERIDE
     Indication: PRODUCT USED FOR UNKNOWN INDICATION
  11. PANTOPRAZOL [Concomitant]
     Active Substance: PANTOPRAZOLE SODIUM
     Indication: PRODUCT USED FOR UNKNOWN INDICATION
  12. PROPIVERIN [Concomitant]
     Active Substance: PROPIVERINE
     Indication: PRODUCT USED FOR UNKNOWN INDICATION
  13. QUETIAPIN RETARD [Concomitant]
     Active Substance: QUETIAPINE
     Indication: RESTLESSNESS
  14. QUETIAPIN RETARD [Concomitant]
     Active Substance: QUETIAPINE
     Indication: PSYCHOTIC DISORDER
  15. LEVODOPA/CARBIDOPA [Concomitant]
     Active Substance: CARBIDOPA\LEVODOPA
     Indication: PRODUCT USED FOR UNKNOWN INDICATION
     Dosage: 200/50MG
  16. MACROGOL [Concomitant]
     Active Substance: POLYETHYLENE GLYCOLS
     Indication: PRODUCT USED FOR UNKNOWN INDICATION
     Dosage: SACHET; UNIT DOSE: 1 SACHET
  17. DUODOPA [Suspect]
     Active Substance: CARBIDOPA\LEVODOPA
  18. FOLIC ACID. [Concomitant]
     Active Substance: FOLIC ACID
     Indication: PRODUCT USED FOR UNKNOWN INDICATION
  19. PROPRA [Concomitant]
     Active Substance: PROPRANOLOL HYDROCHLORIDE
     Indication: PRODUCT USED FOR UNKNOWN INDICATION
  20. MIRABEGRON [Concomitant]
     Active Substance: MIRABEGRON
     Indication: PRODUCT USED FOR UNKNOWN INDICATION

REACTIONS (29)
  - Stoma site erythema [Unknown]
  - Dysarthria [Unknown]
  - Chills [Unknown]
  - Cogwheel rigidity [Unknown]
  - Fatigue [Unknown]
  - Apathy [Unknown]
  - Memory impairment [Unknown]
  - Sleep disorder [Unknown]
  - Confusional state [Unknown]
  - Mental impairment [Unknown]
  - Parkinsonian gait [Unknown]
  - Mobility decreased [Unknown]
  - On and off phenomenon [Unknown]
  - Asthenia [Unknown]
  - Freezing phenomenon [Unknown]
  - Hyperhidrosis [Unknown]
  - Resting tremor [Unknown]
  - Hospitalisation [Recovered/Resolved]
  - Restlessness [Unknown]
  - Hallucination [Unknown]
  - Cerebral atrophy [Unknown]
  - Cognitive disorder [Unknown]
  - Hypokinesia [Unknown]
  - Gait disturbance [Unknown]
  - Movement disorder [Unknown]
  - Suicidal ideation [Unknown]
  - Fine motor skill dysfunction [Unknown]
  - Disease risk factor [Unknown]
  - Speech disorder [Unknown]

NARRATIVE: CASE EVENT DATE: 20210412
